FAERS Safety Report 21547649 (Version 1)
Quarter: 2022Q4

REPORT INFORMATION
  Report Type: Report from Study
  Country: US (occurrence: US)
  Receive Date: 20221103
  Receipt Date: 20221103
  Transmission Date: 20230112
  Serious: No
  Sender: FDA-Public Use
  Company Number: US-ABBVIE-4184204

PATIENT
  Age: 74 Year
  Sex: Female

DRUGS (7)
  1. HUMIRA [Suspect]
     Active Substance: ADALIMUMAB
     Indication: Crohn^s disease
     Dosage: FORM STRENGTH: 40 MILLIGRAM
     Route: 058
     Dates: end: 202210
  2. PFIZER-BIONTECH COVID-19 VACCINE [Concomitant]
     Active Substance: TOZINAMERAN
     Indication: COVID-19 immunisation
     Dosage: LAST ADMIN DATE: 17-AUG-2022/THIRD DOSE
     Route: 030
     Dates: start: 20210817, end: 20210817
  3. PFIZER-BIONTECH COVID-19 VACCINE [Concomitant]
     Active Substance: TOZINAMERAN
     Indication: COVID-19 immunisation
     Dosage: LAST ADMIN DATE:17-JAN-2022/SECOND DOSE
     Route: 030
     Dates: start: 20210127
  4. PFIZER-BIONTECH COVID-19 VACCINE [Concomitant]
     Active Substance: TOZINAMERAN
     Indication: COVID-19 immunisation
     Dosage: LAST ADMIN DATE: 06-JAN-2022/FIRST DOSE
     Route: 030
     Dates: start: 20210106
  5. COVID-19 vaccine [Concomitant]
     Indication: COVID-19 immunisation
     Dosage: LAST ADMIN DATE: 19 FEB 2022/BOOSTER DOSE
     Route: 030
     Dates: start: 20220219
  6. COVID-19 vaccine [Concomitant]
     Indication: COVID-19 immunisation
     Dosage: LAST ADMIN DATE: 20 JUL 2022/BOOSTER DOSE
     Route: 030
     Dates: start: 20220720
  7. COVID-19 vaccine [Concomitant]
     Indication: COVID-19 immunisation
     Dosage: LAST ADMIN DATE: 21 SEP 2022/BOOSTER DOSE
     Route: 030
     Dates: start: 20220921

REACTIONS (2)
  - Crohn^s disease [Not Recovered/Not Resolved]
  - Drug ineffective [Not Recovered/Not Resolved]

NARRATIVE: CASE EVENT DATE: 20221001
